FAERS Safety Report 17074768 (Version 2)
Quarter: 2019Q4

REPORT INFORMATION
  Report Type: Spontaneous
  Country: GB (occurrence: GB)
  Receive Date: 20191126
  Receipt Date: 20191220
  Transmission Date: 20200122
  Serious: Yes (Death)
  Sender: FDA-Public Use
  Company Number: GB-MYLANLABS-2019M1115312

PATIENT
  Sex: Male

DRUGS (5)
  1. CLOZARIL [Suspect]
     Active Substance: CLOZAPINE
     Dosage: 350 MILLIGRAM, PM
     Route: 048
     Dates: start: 20100427
  2. CLONAZEPAM. [Concomitant]
     Active Substance: CLONAZEPAM
     Indication: SCHIZOPHRENIA
     Dosage: 1 MILLIGRAM, BID
     Route: 048
  3. HYOSCINE [Concomitant]
     Active Substance: SCOPOLAMINE
     Indication: ADVERSE DRUG REACTION
     Dosage: 300 MICROGRAM, TID
     Route: 048
  4. CLOZARIL [Suspect]
     Active Substance: CLOZAPINE
     Indication: SCHIZOPHRENIA
     Dosage: 100 MILLIGRAM, AM
     Route: 048
     Dates: start: 20100427
  5. HALOPERIDOL. [Concomitant]
     Active Substance: HALOPERIDOL
     Indication: SCHIZOPHRENIA
     Dosage: 5 MILLIGRAM, QD
     Route: 048

REACTIONS (1)
  - Death [Fatal]

NARRATIVE: CASE EVENT DATE: 201911
